FAERS Safety Report 5112162-1 (Version None)
Quarter: 2006Q3

REPORT INFORMATION
  Report Type: 
  Country: None (occurrence: None)
  Receive Date: 20060922
  Receipt Date: 20060501
  Transmission Date: 20061208
  Serious: No
  Sender: FDA-Public Use
  Company Number: US-GLAXOSMITHKLINE-A0603768A

PATIENT
  Age: 64 Year
  Sex: Female

DRUGS (1)
  1. ABREVA [Suspect]
     Dates: start: 20060429, end: 20060430

REACTIONS (4)
  - FACIAL PAIN [None]
  - OEDEMA MUCOSAL [None]
  - ORAL PAIN [None]
  - SWELLING FACE [None]
